FAERS Safety Report 9419814 (Version 1)
Quarter: 2013Q3

REPORT INFORMATION
  Report Type: Spontaneous
  Country: GB (occurrence: GB)
  Receive Date: 20130725
  Receipt Date: 20130725
  Transmission Date: 20140515
  Serious: Yes (Hospitalization)
  Sender: FDA-Public Use
  Company Number: GB-ELI_LILLY_AND_COMPANY-GB201307003720

PATIENT
  Age: 72 Year
  Sex: Male

DRUGS (1)
  1. DULOXETINE HYDROCHLORIDE [Suspect]
     Indication: NEURALGIA
     Dosage: 60 MG, QD
     Route: 048
     Dates: start: 20130626, end: 20130629

REACTIONS (4)
  - Somnolence [Recovered/Resolved]
  - Nausea [Recovered/Resolved]
  - Impaired self-care [Recovered/Resolved]
  - Off label use [Unknown]
